FAERS Safety Report 14304752 (Version 1)
Quarter: 2017Q4

REPORT INFORMATION
  Report Type: Spontaneous
  Country: JP (occurrence: JP)
  Receive Date: 20171219
  Receipt Date: 20171219
  Transmission Date: 20180321
  Serious: Yes (Death, Other)
  Sender: FDA-Public Use
  Company Number: JP-OTSUKA-JP-2011-11470

PATIENT
  Age: 61 Year
  Sex: Male
  Weight: 50 kg

DRUGS (34)
  1. SENNOSIDE [Concomitant]
     Active Substance: SENNOSIDES
     Indication: CONSTIPATION
     Dosage: 24 MG, QD
     Route: 048
     Dates: end: 20110417
  2. SULPIRIDE [Concomitant]
     Active Substance: SULPIRIDE
     Indication: PRODUCT USED FOR UNKNOWN INDICATION
     Dosage: 150 MG, QD
     Route: 065
     Dates: start: 20110414, end: 20110417
  3. MAGMITT [Concomitant]
     Active Substance: MAGNESIUM OXIDE
     Indication: CONSTIPATION
     Dosage: 330 MG, TID
     Route: 048
     Dates: end: 20110417
  4. MAGMITT [Concomitant]
     Active Substance: MAGNESIUM OXIDE
     Dosage: 330 MG, UNK
     Route: 048
     Dates: start: 20110421
  5. LEVOTOMIN [Concomitant]
     Active Substance: LEVOMEPROMAZINE
     Indication: RESTLESSNESS
     Dosage: 5 MG, SINGLE
     Route: 048
     Dates: end: 20110827
  6. SENNOSIDE [Concomitant]
     Active Substance: SENNOSIDES
     Dosage: 24 MG, UNK
     Route: 048
     Dates: start: 20110513, end: 20110827
  7. SENNA [Concomitant]
     Active Substance: SENNA LEAF\SENNOSIDES\SENNOSIDES A AND B
     Indication: PRODUCT USED FOR UNKNOWN INDICATION
     Dosage: 24 MG, QD
     Route: 065
     Dates: end: 20110417
  8. LEVOMEPROMAZINE [Concomitant]
     Active Substance: LEVOMEPROMAZINE
     Indication: PRODUCT USED FOR UNKNOWN INDICATION
     Dosage: 5 MG, QD
     Route: 065
     Dates: start: 20110414, end: 20110827
  9. MAGMITT [Concomitant]
     Active Substance: MAGNESIUM OXIDE
     Dosage: 330 MG, TID
     Route: 048
     Dates: start: 20110812, end: 20110827
  10. LENDORMIN [Concomitant]
     Active Substance: BROTIZOLAM
     Indication: INSOMNIA
     Dosage: 0.25 MG MILLIGRAM(S), QD, PRN
     Route: 048
     Dates: start: 20110827, end: 20110827
  11. DIOVAN [Concomitant]
     Active Substance: VALSARTAN
     Indication: HYPERTENSION
     Dosage: 40 MG, BID
     Route: 048
     Dates: start: 20101222, end: 20110413
  12. DOGMATYL [Concomitant]
     Active Substance: SULPIRIDE
     Indication: SCHIZOPHRENIA
     Dosage: 50 MG, TID
     Route: 048
     Dates: start: 20110414, end: 20110417
  13. ABILIFY [Suspect]
     Active Substance: ARIPIPRAZOLE
     Indication: SCHIZOPHRENIA
     Dosage: 6 MG, QD
     Route: 048
     Dates: start: 20110415, end: 20110416
  14. CERCINE [Concomitant]
     Active Substance: DIAZEPAM
     Indication: MUSCULOSKELETAL STIFFNESS
     Dosage: 2 MG, TID
     Route: 048
     Dates: start: 20110604, end: 20110827
  15. LEVOTOMIN [Concomitant]
     Active Substance: LEVOMEPROMAZINE
     Indication: INSOMNIA
     Dosage: 5 MG, SINGLE
     Route: 048
     Dates: start: 20110414, end: 20110417
  16. LULLAN [Concomitant]
     Active Substance: PEROSPIRONE HYDROCHLORIDE
     Dosage: 4 MG, UNK
     Route: 048
     Dates: start: 20110414, end: 20110417
  17. DIOVAN [Concomitant]
     Active Substance: VALSARTAN
     Dosage: 40 MG, UNK
     Route: 048
     Dates: start: 20110414, end: 20110417
  18. DOGMATYL [Concomitant]
     Active Substance: SULPIRIDE
     Dosage: 50 MG, UNK
     Route: 048
     Dates: start: 20110421
  19. AKIRIDEN [Concomitant]
     Active Substance: BIPERIDEN
     Indication: PRODUCT USED FOR UNKNOWN INDICATION
     Dosage: 1 MG, TID
     Route: 048
     Dates: end: 20110417
  20. SENNOSIDE [Concomitant]
     Active Substance: SENNOSIDES
     Dosage: 24 MG, UNK
     Route: 048
     Dates: start: 20110425
  21. BENZALIN [Concomitant]
     Active Substance: NITRAZEPAM
     Dosage: 5 MG, UNK
     Route: 048
     Dates: start: 20110513, end: 20110827
  22. LULLAN [Concomitant]
     Active Substance: PEROSPIRONE HYDROCHLORIDE
     Indication: SCHIZOPHRENIA
     Dosage: 4 MG, TID
     Route: 048
     Dates: start: 20100826, end: 20110413
  23. ABILIFY [Suspect]
     Active Substance: ARIPIPRAZOLE
     Dosage: 6 MG, QD
     Route: 048
     Dates: start: 20110422, end: 20110422
  24. ABILIFY [Suspect]
     Active Substance: ARIPIPRAZOLE
     Dosage: 6 MG, QD
     Route: 048
     Dates: end: 20110827
  25. ARTANE [Concomitant]
     Active Substance: TRIHEXYPHENIDYL HYDROCHLORIDE
     Indication: EXTRAPYRAMIDAL DISORDER
     Dosage: 2 MG, QID
     Route: 048
     Dates: start: 20110812, end: 20110827
  26. BENZALIN [Concomitant]
     Active Substance: NITRAZEPAM
     Indication: INSOMNIA
     Dosage: 5 MG, QD
     Route: 048
     Dates: end: 20110417
  27. GASMOTIN [Concomitant]
     Active Substance: MOSAPRIDE CITRATE
     Indication: PRODUCT USED FOR UNKNOWN INDICATION
     Dosage: 5 MG, TID
     Route: 048
     Dates: end: 20110417
  28. GASMOTIN [Concomitant]
     Active Substance: MOSAPRIDE CITRATE
     Dosage: 5 MG, UNK
     Route: 048
     Dates: start: 20110421
  29. VALSARTAN. [Concomitant]
     Active Substance: VALSARTAN
     Indication: PRODUCT USED FOR UNKNOWN INDICATION
     Dosage: 40 MG, QD
     Route: 065
     Dates: start: 20101222, end: 20110417
  30. AKINESTAT [Concomitant]
     Indication: PRODUCT USED FOR UNKNOWN INDICATION
     Dosage: TABS  22APR11:3MG/DAY
     Route: 065
     Dates: end: 20110417
  31. LODOPIN [Concomitant]
     Active Substance: ZOTEPINE
     Indication: RESTLESSNESS
     Dosage: 25 MG, BID
     Route: 048
     Dates: start: 20110802, end: 20110822
  32. CERCINE [Concomitant]
     Active Substance: DIAZEPAM
     Indication: RESTLESSNESS
  33. BENZALIN [Concomitant]
     Active Substance: NITRAZEPAM
     Dosage: 5 MG, QD
     Route: 048
     Dates: start: 20110425
  34. AKIRIDEN [Concomitant]
     Active Substance: BIPERIDEN
     Dosage: 1 MG, UNK
     Route: 048
     Dates: start: 20110422

REACTIONS (6)
  - Pyrexia [Recovered/Resolved]
  - Hepatic function abnormal [Fatal]
  - Stupor [Recovering/Resolving]
  - Dysphagia [Unknown]
  - Insomnia [Recovered/Resolved]
  - Blood glucose decreased [Fatal]

NARRATIVE: CASE EVENT DATE: 20110417
